FAERS Safety Report 17074324 (Version 1)
Quarter: 2019Q4

REPORT INFORMATION
  Report Type: Spontaneous
  Country: US (occurrence: US)
  Receive Date: 20191126
  Receipt Date: 20191126
  Transmission Date: 20200122
  Serious: No
  Sender: FDA-Public Use
  Company Number: US-TEVA-2019-US-1144572

PATIENT
  Age: 69 Year
  Sex: Female

DRUGS (1)
  1. CLONAZEPAM NEW TEVA [Suspect]
     Active Substance: CLONAZEPAM
     Dosage: DOSE STRENGTH:1
     Route: 065
     Dates: start: 20191111

REACTIONS (6)
  - Agitation [Unknown]
  - Product substitution issue [Unknown]
  - Insomnia [Unknown]
  - Irritability [Unknown]
  - Anxiety [Unknown]
  - Fatigue [Unknown]

NARRATIVE: CASE EVENT DATE: 20191111
